FAERS Safety Report 25964405 (Version 1)
Quarter: 2025Q4

REPORT INFORMATION
  Report Type: Spontaneous
  Country: US (occurrence: None)
  Receive Date: 20251027
  Receipt Date: 20251027
  Transmission Date: 20260117
  Serious: Yes (Life-Threatening, Hospitalization, Disabling, Other)
  Sender: FDA-CTU
  Company Number: None

PATIENT
  Age: 37 Year
  Sex: Male
  Weight: 50.4 kg

DRUGS (11)
  1. ONFI [Suspect]
     Active Substance: CLOBAZAM
     Indication: Epilepsy
     Dosage: FREQUENCY : AT BEDTIME;?
     Route: 048
  2. METOPROLOL SUCCINATE [Concomitant]
     Active Substance: METOPROLOL SUCCINATE
  3. SERTRALINE [Concomitant]
     Active Substance: SERTRALINE HYDROCHLORIDE
  4. MIRTAZAPINE [Concomitant]
     Active Substance: MIRTAZAPINE
  5. OMEPRAZOLE [Concomitant]
     Active Substance: OMEPRAZOLE
  6. R shoulder prosthesis [Concomitant]
  7. VITAMIN B [Concomitant]
     Active Substance: VITAMIN B
  8. IRON [Concomitant]
     Active Substance: IRON
  9. VITAMIN C [Concomitant]
     Active Substance: ASCORBIC ACID
  10. FISH OIL [Concomitant]
     Active Substance: FISH OIL
  11. VITAMIN D [Concomitant]
     Active Substance: VITAMIN D NOS

REACTIONS (4)
  - Rash [None]
  - Rash erythematous [None]
  - Skin exfoliation [None]
  - Urinary retention [None]
